FAERS Safety Report 21405764 (Version 1)
Quarter: 2022Q4

REPORT INFORMATION
  Report Type: Spontaneous
  Country: US (occurrence: US)
  Receive Date: 20221004
  Receipt Date: 20221004
  Transmission Date: 20230113
  Serious: Yes (Other)
  Sender: FDA-Public Use
  Company Number: US-Techdow-2022Techdow000070

PATIENT
  Age: 22 Year
  Sex: Female

DRUGS (1)
  1. HEPARIN SODIUM [Suspect]
     Active Substance: HEPARIN SODIUM
     Indication: Deep vein thrombosis

REACTIONS (8)
  - Heparin-induced thrombocytopenia [Recovered/Resolved]
  - Pericardial haemorrhage [Unknown]
  - Subarachnoid haemorrhage [Unknown]
  - Skin necrosis [Unknown]
  - Pneumonia [Unknown]
  - Enterococcal infection [Unknown]
  - Osteomyelitis [Unknown]
  - Renal failure [Unknown]
